FAERS Safety Report 18594061 (Version 2)
Quarter: 2021Q1

REPORT INFORMATION
  Report Type: Spontaneous
  Country: JP (occurrence: JP)
  Receive Date: 20201209
  Receipt Date: 20210215
  Transmission Date: 20210419
  Serious: Yes (Death, Life-Threatening, Disabling)
  Sender: FDA-Public Use
  Company Number: NVSJ2020JP012991

PATIENT
  Age: 62 Year
  Sex: Female

DRUGS (1)
  1. REVOLADE TAB [Suspect]
     Active Substance: ELTROMBOPAG OLAMINE
     Indication: IMMUNE THROMBOCYTOPENIA
     Dosage: 12.5 MG
     Route: 048
     Dates: start: 20121217, end: 20140718

REACTIONS (2)
  - Platelet count decreased [Recovering/Resolving]
  - Cerebral infarction [Fatal]

NARRATIVE: CASE EVENT DATE: 20121217
